FAERS Safety Report 9496570 (Version 3)
Quarter: 2013Q4

REPORT INFORMATION
  Report Type: Report from Study
  Country: DE (occurrence: DE)
  Receive Date: 20130904
  Receipt Date: 20131111
  Transmission Date: 20140711
  Serious: Yes (Death, Hospitalization)
  Sender: FDA-Public Use
  Company Number: DE-SANOFI-AVENTIS-2013SA087489

PATIENT
  Age: 71 Year
  Sex: Male
  Weight: 83.2 kg

DRUGS (21)
  1. JEVTANA [Suspect]
     Indication: HORMONE-REFRACTORY PROSTATE CANCER
     Route: 051
     Dates: start: 20130821, end: 20130821
  2. JEVTANA [Suspect]
     Indication: HORMONE-REFRACTORY PROSTATE CANCER
     Route: 051
     Dates: start: 20130618, end: 20130618
  3. MACROGOL [Concomitant]
     Indication: CONSTIPATION
     Dosage: 1-0-0
  4. BELOC ZOK [Concomitant]
     Indication: HYPERTENSION
  5. AMLODIPINE [Concomitant]
     Indication: HYPERTENSION
     Dosage: 1-0-0
  6. ENAHEXAL [Concomitant]
     Indication: HYPERTENSION
  7. ENALAPRIL [Concomitant]
     Indication: HYPERTENSION
     Dosage: 1-0-1
  8. SIMVASTATIN [Concomitant]
     Indication: HYPERLIPIDAEMIA
  9. ACETYLSALICYLIC ACID [Concomitant]
     Indication: CORONARY ARTERY DISEASE
     Dosage: 1-0-0
  10. CALCIMAGON [Concomitant]
     Indication: METASTASES TO BONE
  11. DEXAMETHASONE [Concomitant]
  12. GRANISETRON [Concomitant]
  13. ZOMETA [Concomitant]
  14. ANALGESICS [Concomitant]
  15. RANITIDINE [Concomitant]
  16. TAVEGIL [Concomitant]
  17. DECORTIN-H [Concomitant]
     Dosage: 1-0-0
  18. MPA [Concomitant]
     Dosage: 1-0-1
  19. METOPROLOL [Concomitant]
     Dosage: 1-0-0
  20. PANTOPRAZOLE [Concomitant]
     Dosage: 0-0-1
  21. TARGIN [Concomitant]
     Dosage: 10MG/5MG 2-0-2

REACTIONS (3)
  - Neoplasm progression [Fatal]
  - Anaemia [Not Recovered/Not Resolved]
  - Leukopenia [Not Recovered/Not Resolved]
